FAERS Safety Report 14294171 (Version 1)
Quarter: 2017Q4

REPORT INFORMATION
  Report Type: Spontaneous
  Country: US (occurrence: US)
  Receive Date: 20171217
  Receipt Date: 20171217
  Transmission Date: 20180321
  Serious: No
  Sender: FDA-Public Use
  Company Number: US-LUNDBECK-DKLU2033230

PATIENT
  Age: 65 Year
  Sex: Male

DRUGS (4)
  1. DROXIDOPA [Suspect]
     Active Substance: DROXIDOPA
     Route: 065
  2. DROXIDOPA [Suspect]
     Active Substance: DROXIDOPA
     Indication: PRODUCT USED FOR UNKNOWN INDICATION
     Route: 065
  3. DROXIDOPA [Suspect]
     Active Substance: DROXIDOPA
     Route: 065
  4. DROXIDOPA [Suspect]
     Active Substance: DROXIDOPA
     Route: 065

REACTIONS (1)
  - Supine hypertension [Recovered/Resolved]
